FAERS Safety Report 5742183-7 (Version None)
Quarter: 2008Q2

REPORT INFORMATION
  Report Type: 
  Country: None (occurrence: None)
  Receive Date: 20080514
  Receipt Date: 20080514
  Transmission Date: 20081010
  Serious: Yes (Other)
  Sender: FDA-Public Use
  Company Number: None

PATIENT
  Age: 57 Year
  Sex: Female
  Weight: 60.3284 kg

DRUGS (1)
  1. JIGSAW CALCIUM 250 MG JIGSAW -ALBION IS THE MFGR- [Suspect]
     Indication: OSTEOPOROSIS
     Dosage: 2 TABLETS 2 TIMES/DAY PO
     Route: 048
     Dates: start: 20080427, end: 20080429

REACTIONS (8)
  - ABDOMINAL PAIN LOWER [None]
  - ABDOMINAL TENDERNESS [None]
  - ABNORMAL FAECES [None]
  - DYSSTASIA [None]
  - FAECES DISCOLOURED [None]
  - HAEMORRHOIDS [None]
  - INFREQUENT BOWEL MOVEMENTS [None]
  - PHARMACEUTICAL PRODUCT COMPLAINT [None]
